FAERS Safety Report 5493905-4 (Version None)
Quarter: 2007Q4

REPORT INFORMATION
  Report Type: 
  Country: None (occurrence: None)
  Receive Date: 20071023
  Receipt Date: 20071017
  Transmission Date: 20080405
  Serious: Yes (Death)
  Sender: FDA-Public Use
  Company Number: US-GENENTECH-250032

PATIENT
  Age: 64 Year
  Sex: Female

DRUGS (2)
  1. RITUXAN [Suspect]
     Indication: FACTOR VIII DEFICIENCY
  2. CYCLOPHOSPHAMIDE [Concomitant]
     Indication: FACTOR VIII DEFICIENCY
     Route: 048

REACTIONS (1)
  - CARDIOVASCULAR DISORDER [None]
